FAERS Safety Report 15747267 (Version 1)
Quarter: 2018Q4

REPORT INFORMATION
  Report Type: Spontaneous
  Country: US (occurrence: US)
  Receive Date: 20181220
  Receipt Date: 20181220
  Transmission Date: 20190205
  Serious: No
  Sender: FDA-Public Use
  Company Number: US-AVADEL SPECIALTY PHARMACEUTICALS, LLC-2018AVA00420

PATIENT
  Age: 52 Year
  Sex: Male
  Weight: 90.7 kg

DRUGS (3)
  1. UNSPECIFIED HIGH BLOOD PRESSURE MEDICATION [Concomitant]
     Active Substance: UNSPECIFIED INGREDIENT
  2. NOCTIVA [Suspect]
     Active Substance: DESMOPRESSIN ACETATE
     Indication: NOCTURIA
     Dosage: 0.83 ?G, 1X/DAY APPROXIMATELY 30 MINUTES BEFORE BEDTIME
     Route: 045
     Dates: start: 201809, end: 2018
  3. UNSPECIFIED HIGH CHOLESTEROL MEDICATION [Concomitant]
     Active Substance: UNSPECIFIED INGREDIENT

REACTIONS (6)
  - Initial insomnia [Recovered/Resolved]
  - Drug ineffective [Recovered/Resolved]
  - Nasal congestion [Recovered/Resolved]
  - Eye swelling [Recovered/Resolved]
  - Lacrimation increased [Recovered/Resolved]
  - Nasal discomfort [Recovered/Resolved]

NARRATIVE: CASE EVENT DATE: 201809
